FAERS Safety Report 16068723 (Version 4)
Quarter: 2019Q2

REPORT INFORMATION
  Report Type: Spontaneous
  Country: JP (occurrence: JP)
  Receive Date: 20190313
  Receipt Date: 20190412
  Transmission Date: 20190711
  Serious: Yes (Hospitalization, Other)
  Sender: FDA-Public Use
  Company Number: JP-ASTRAZENECA-2018SF63984

PATIENT
  Age: 66 Year
  Sex: Female
  Weight: 47 kg

DRUGS (4)
  1. ZOLPIDEM TARTRATE. [Concomitant]
     Active Substance: ZOLPIDEM TARTRATE
     Indication: INSOMNIA
     Route: 048
  2. DIHYDROCODEINE PHOSPHATE [Concomitant]
     Active Substance: DIHYDROCODEINE PHOSPHATE
     Indication: COUGH
     Dosage: DOSE UNKNOWN, AS REQUIRED
     Route: 048
  3. TAGRISSO [Suspect]
     Active Substance: OSIMERTINIB
     Indication: NON-SMALL CELL LUNG CANCER
     Route: 048
     Dates: start: 20181109, end: 20181203
  4. REBAMIPIDE [Concomitant]
     Active Substance: REBAMIPIDE
     Indication: GASTRITIS
     Dosage: AS REQUIRED
     Route: 048

REACTIONS (7)
  - Interstitial lung disease [Recovered/Resolved]
  - Infectious pleural effusion [Unknown]
  - Purpura [Recovering/Resolving]
  - Pleural effusion [Recovered/Resolved]
  - Pulmonary artery dilatation [Unknown]
  - Atrial fibrillation [Unknown]
  - Pulmonary hypertension [Unknown]

NARRATIVE: CASE EVENT DATE: 20181122
